FAERS Safety Report 5490829-3 (Version None)
Quarter: 2007Q4

REPORT INFORMATION
  Report Type: 
  Country: None (occurrence: None)
  Receive Date: 20071019
  Receipt Date: 20071010
  Transmission Date: 20080405
  Serious: Yes (Death, Hospitalization)
  Sender: FDA-Public Use
  Company Number: AU-ROCHE-433307

PATIENT
  Age: 61 Year
  Sex: Female

DRUGS (5)
  1. CAPECITABINE [Suspect]
     Route: 048
     Dates: start: 20041124
  2. ATENOLOL [Concomitant]
  3. IRBESARTAN [Concomitant]
  4. METFORMIN HYDROCHLORIDE [Concomitant]
  5. AMITRIPTYLINE HYDROCHLORIDE [Concomitant]

REACTIONS (7)
  - ANAEMIA [None]
  - BREAST CANCER METASTATIC [None]
  - HEPATIC FAILURE [None]
  - HYPERKALAEMIA [None]
  - MUCOSAL INFLAMMATION [None]
  - RENAL FAILURE [None]
  - THROMBOCYTOPENIA [None]
